FAERS Safety Report 9062826 (Version 1)
Quarter: 2013Q1

REPORT INFORMATION
  Report Type: Spontaneous
  Country: PH (occurrence: PH)
  Receive Date: 20130213
  Receipt Date: 20130213
  Transmission Date: 20140127
  Serious: Yes (Death)
  Sender: FDA-Public Use
  Company Number: PH-MERCK-1302PHL004156

PATIENT
  Age: 79 Year
  Sex: Female

DRUGS (1)
  1. JANUMET [Suspect]
     Dosage: 1 DF, BID
     Route: 048

REACTIONS (1)
  - Death [Fatal]
